FAERS Safety Report 6892246 (Version 2)
Quarter: 2020Q3

REPORT INFORMATION
  Report Type: Report from Study
  Country: US (occurrence: US)
  Receive Date: 20090126
  Receipt Date: 20090224
  Transmission Date: 20201105
  Serious: Yes (Death, Other)
  Sender: FDA-Public Use
  Company Number: US-ROCHE-609732

PATIENT
  Age: 79 Year
  Sex: Female

DRUGS (3)
  1. IBANDRONIC ACID. [Suspect]
     Active Substance: IBANDRONIC ACID
     Indication: OSTEOPOROSIS
     Route: 048
     Dates: start: 20070112
  2. PREDNISONE. [Concomitant]
     Active Substance: PREDNISONE
     Indication: POLYMYALGIA RHEUMATICA
     Dosage: FREQUENCY: DAILY
     Route: 048
     Dates: start: 20081005, end: 20081109
  3. SYNTHROID [Concomitant]
     Active Substance: LEVOTHYROXINE SODIUM
     Indication: HYPOTHYROIDISM
     Route: 048
     Dates: start: 20080906, end: 20081109

REACTIONS (3)
  - Pulmonary embolism [Fatal]
  - Myocardial infarction [Unknown]
  - Thrombosis [Fatal]

NARRATIVE: CASE EVENT DATE: 20070101
